FAERS Safety Report 12267939 (Version 1)
Quarter: 2016Q2

REPORT INFORMATION
  Report Type: Spontaneous
  Country: US (occurrence: US)
  Receive Date: 20160414
  Receipt Date: 20160414
  Transmission Date: 20160815
  Serious: No
  Sender: FDA-Public Use
  Company Number: US-ENDO PHARMACEUTICALS INC.-2016-001319

PATIENT
  Sex: Female
  Weight: 84.9 kg

DRUGS (6)
  1. ZOLOFT [Concomitant]
     Active Substance: SERTRALINE HYDROCHLORIDE
     Indication: ANTIDEPRESSANT THERAPY
  2. LIDODERM [Concomitant]
     Active Substance: LIDOCAINE
     Indication: MUSCULOSKELETAL PAIN
     Route: 065
     Dates: start: 2006
  3. LIDODERM [Concomitant]
     Active Substance: LIDOCAINE
     Indication: BACK PAIN
  4. DIAZEPAM. [Concomitant]
     Active Substance: DIAZEPAM
     Indication: ANXIETY
  5. OXYCODONE/ACETAMINOPHEN TABLETS 10MG/325MG [Suspect]
     Active Substance: ACETAMINOPHEN\OXYCODONE HYDROCHLORIDE
     Indication: PAIN
     Route: 065
     Dates: start: 2015
  6. OXYCODONE/ACETAMINOPHEN [Suspect]
     Active Substance: ACETAMINOPHEN\OXYCODONE HYDROCHLORIDE
     Indication: PAIN
     Route: 065
     Dates: start: 2015

REACTIONS (5)
  - Urinary incontinence [Not Recovered/Not Resolved]
  - Dementia [Not Recovered/Not Resolved]
  - Nervousness [Recovered/Resolved]
  - Tremor [Recovered/Resolved]
  - Drug effect incomplete [Unknown]

NARRATIVE: CASE EVENT DATE: 2015
